FAERS Safety Report 25376832 (Version 1)
Quarter: 2025Q2

REPORT INFORMATION
  Report Type: Spontaneous
  Country: US (occurrence: US)
  Receive Date: 20250530
  Receipt Date: 20250530
  Transmission Date: 20250717
  Serious: Yes (Disabling, Other)
  Sender: NOVO NORDISK
  Company Number: US-NOVOPROD-1439833

PATIENT
  Sex: Female

DRUGS (1)
  1. OZEMPIC [Suspect]
     Active Substance: SEMAGLUTIDE
     Indication: Diabetes mellitus
     Route: 058
     Dates: start: 2024

REACTIONS (4)
  - Walking disability [Not Recovered/Not Resolved]
  - Lung disorder [Not Recovered/Not Resolved]
  - Diabetes mellitus [Not Recovered/Not Resolved]
  - Corrective lens user [Not Recovered/Not Resolved]
